FAERS Safety Report 12312417 (Version 1)
Quarter: 2016Q2

REPORT INFORMATION
  Report Type: Spontaneous
  Country: JP (occurrence: JP)
  Receive Date: 20160428
  Receipt Date: 20160428
  Transmission Date: 20160815
  Serious: Yes (Hospitalization, Other)
  Sender: FDA-Public Use
  Company Number: JP-STRIDES ARCOLAB LIMITED-2016SP002681

PATIENT

DRUGS (3)
  1. MELOXICAM. [Suspect]
     Active Substance: MELOXICAM
     Indication: ARTHRALGIA
     Dosage: 10 MG, QD
  2. ZALTOPROFEN [Suspect]
     Active Substance: ZALTOPROFEN
     Indication: PRODUCT USED FOR UNKNOWN INDICATION
     Dosage: 160 MG, QD
  3. LANSOPRAZOLE. [Concomitant]
     Active Substance: LANSOPRAZOLE
     Indication: PRODUCT USED FOR UNKNOWN INDICATION
     Dosage: 15 MG, QD

REACTIONS (15)
  - Helicobacter infection [Unknown]
  - Small intestinal stenosis [Recovered/Resolved]
  - Diarrhoea [Recovered/Resolved]
  - Chronic gastritis [Unknown]
  - Large intestinal ulcer [Recovered/Resolved]
  - Shock [Unknown]
  - Haematochezia [Recovered/Resolved]
  - Gastrointestinal haemorrhage [Recovered/Resolved]
  - Gastrointestinal disorder [Recovered/Resolved]
  - Abdominal tenderness [Recovered/Resolved]
  - Hiatus hernia [Unknown]
  - Small intestine ulcer [Recovered/Resolved]
  - Abdominal pain [Recovered/Resolved]
  - Anaemia [Recovered/Resolved]
  - Pyrexia [Recovered/Resolved]
